FAERS Safety Report 15881110 (Version 1)
Quarter: 2019Q1

REPORT INFORMATION
  Report Type: Report from Study
  Country: ZA (occurrence: ZA)
  Receive Date: 20190128
  Receipt Date: 20190128
  Transmission Date: 20190417
  Serious: Yes (Life-Threatening)
  Sender: FDA-Public Use
  Company Number: ZA-SAKK-2019SA020185AA

PATIENT
  Age: 33 Year
  Sex: Female

DRUGS (3)
  1. OPTISULIN (INSULIN GLARGINE) [Suspect]
     Active Substance: INSULIN GLARGINE
     Dosage: UNK UNK, UNK
  2. NO STUDY DRUG GIVEN [Suspect]
     Active Substance: UNSPECIFIED INGREDIENT
  3. APIDRA [Concomitant]
     Active Substance: INSULIN GLULISINE
     Dosage: 24 U, QD(BEFORE BREAKFAST)
     Dates: start: 20180801

REACTIONS (3)
  - Fatigue [Recovered/Resolved]
  - Hypoglycaemia [Recovered/Resolved]
  - Injection site bruising [Recovered/Resolved]

NARRATIVE: CASE EVENT DATE: 20181201
